FAERS Safety Report 7973576-5 (Version None)
Quarter: 2011Q4

REPORT INFORMATION
  Report Type: 
  Country: None (occurrence: None)
  Receive Date: 20111202
  Receipt Date: 20111121
  Transmission Date: 20120403
  Serious: Yes (Disabling)
  Sender: FDA-Public Use
  Company Number: 2011SP054289

PATIENT
  Age: 51 Year
  Sex: Male

DRUGS (4)
  1. CELESTONE [Suspect]
     Indication: ARTHRITIS
     Dosage: 6.5 MG; ONCE; IA
     Route: 014
     Dates: start: 20111011
  2. LASIX [Suspect]
     Dosage: 40 MG; QD; PO
     Route: 048
     Dates: start: 20111011
  3. ASPIRIN [Concomitant]
  4. GLUCOSAMINE [Concomitant]

REACTIONS (1)
  - HICCUPS [None]
